FAERS Safety Report 12484098 (Version 1)
Quarter: 2016Q2

REPORT INFORMATION
  Report Type: Spontaneous
  Country: US (occurrence: US)
  Receive Date: 20160621
  Receipt Date: 20160621
  Transmission Date: 20160815
  Serious: No
  Sender: FDA-Public Use
  Company Number: US-LEO PHARMA-242500

PATIENT
  Age: 49 Year
  Sex: Female

DRUGS (1)
  1. PICATO [Suspect]
     Active Substance: INGENOL MEBUTATE
     Indication: ACTINIC KERATOSIS
     Route: 061
     Dates: start: 20160502, end: 20160504

REACTIONS (10)
  - Application site erythema [Not Recovered/Not Resolved]
  - Application site pain [Recovered/Resolved]
  - Dyskinesia [Recovered/Resolved]
  - Application site swelling [Recovered/Resolved]
  - Application site reaction [Unknown]
  - Wrong technique in product usage process [Unknown]
  - Application site vesicles [Not Recovered/Not Resolved]
  - Application site discharge [Recovered/Resolved]
  - Application site irritation [Not Recovered/Not Resolved]
  - Application site rash [Not Recovered/Not Resolved]

NARRATIVE: CASE EVENT DATE: 20160502
